FAERS Safety Report 16755379 (Version 2)
Quarter: 2019Q3

REPORT INFORMATION
  Report Type: Report from Study
  Country: US (occurrence: US)
  Receive Date: 20190829
  Receipt Date: 20190919
  Transmission Date: 20191005
  Serious: No
  Sender: FDA-Public Use
  Company Number: US-ROCHE-2170946

PATIENT
  Age: 71 Year
  Sex: Female

DRUGS (4)
  1. OCREVUS [Suspect]
     Active Substance: OCRELIZUMAB
     Route: 065
     Dates: start: 20180827
  2. OCREVUS [Suspect]
     Active Substance: OCRELIZUMAB
     Route: 065
     Dates: start: 20190809
  3. OCREVUS [Suspect]
     Active Substance: OCRELIZUMAB
     Indication: RELAPSING-REMITTING MULTIPLE SCLEROSIS
     Route: 065
     Dates: start: 20180813
  4. OCREVUS [Suspect]
     Active Substance: OCRELIZUMAB
     Route: 065
     Dates: start: 20190211

REACTIONS (14)
  - Flushing [Unknown]
  - Gingival disorder [Recovered/Resolved]
  - Musculoskeletal stiffness [Unknown]
  - Dry mouth [Unknown]
  - Nausea [Unknown]
  - Nasal septum deviation [Not Recovered/Not Resolved]
  - Acne pustular [Unknown]
  - Blood cholesterol increased [Unknown]
  - Palpitations [Unknown]
  - Chest pain [Unknown]
  - Peripheral swelling [Recovered/Resolved]
  - Rosacea [Recovered/Resolved]
  - Hypertension [Not Recovered/Not Resolved]
  - Acne [Not Recovered/Not Resolved]

NARRATIVE: CASE EVENT DATE: 20180813
